FAERS Safety Report 16199665 (Version 3)
Quarter: 2019Q2

REPORT INFORMATION
  Report Type: Spontaneous
  Country: US (occurrence: US)
  Receive Date: 20190415
  Receipt Date: 20190619
  Transmission Date: 20190711
  Serious: Yes (Death, Other)
  Sender: FDA-Public Use
  Company Number: US-PFIZER INC-2019164245

PATIENT
  Age: 77 Year
  Sex: Female

DRUGS (2)
  1. XELJANZ XR [Suspect]
     Active Substance: TOFACITINIB CITRATE
     Indication: RHEUMATOID ARTHRITIS
     Dosage: 11 MG, DAILY
     Route: 048
     Dates: start: 20180420
  2. ELIQUIS [Concomitant]
     Active Substance: APIXABAN
     Dosage: UNK UNK, 2X/DAY

REACTIONS (1)
  - Gastric cancer stage IV [Fatal]
